FAERS Safety Report 4490704-7 (Version None)
Quarter: 2004Q4

REPORT INFORMATION
  Report Type: 
  Country: None (occurrence: None)
  Receive Date: 20041102
  Receipt Date: 20040804
  Transmission Date: 20050328
  Serious: Yes (Other)
  Sender: FDA-Public Use
  Company Number: US-ROCHE-376874

PATIENT
  Age: 67 Year
  Sex: Female

DRUGS (2)
  1. PEGASYS [Suspect]
     Indication: HEPATITIS C
     Route: 065
     Dates: start: 20040511
  2. COPEGUS [Suspect]
     Indication: HEPATITIS C
     Dosage: DOSAGE REGIMEN: 2AM AND 2PM
     Route: 065
     Dates: start: 20040511

REACTIONS (9)
  - ALOPECIA [None]
  - ANAEMIA [None]
  - ANOREXIA [None]
  - DEPRESSION [None]
  - DIARRHOEA [None]
  - INJECTION SITE HAEMORRHAGE [None]
  - INJECTION SITE PRURITUS [None]
  - ROAD TRAFFIC ACCIDENT [None]
  - VISION BLURRED [None]
